FAERS Safety Report 21297982 (Version 2)
Quarter: 2022Q3

REPORT INFORMATION
  Report Type: Report from Study
  Country: US (occurrence: US)
  Receive Date: 20220906
  Receipt Date: 20220921
  Transmission Date: 20221027
  Serious: Yes (Death, Hospitalization)
  Sender: FDA-Public Use
  Company Number: US-BAYER-2022A123858

PATIENT
  Age: 74 Year
  Sex: Male
  Weight: 220 kg

DRUGS (12)
  1. ADEMPAS [Suspect]
     Active Substance: RIOCIGUAT
     Indication: Pulmonary arterial hypertension
     Dosage: UNK
     Dates: start: 20220519
  2. ADEMPAS [Suspect]
     Active Substance: RIOCIGUAT
     Indication: Product used for unknown indication
     Dosage: 1.5 MG, TID
     Route: 048
  3. ADEMPAS [Suspect]
     Active Substance: RIOCIGUAT
     Indication: Pulmonary arterial hypertension
     Dosage: UNK
     Dates: end: 2022
  4. XARELTO [Concomitant]
     Active Substance: RIVAROXABAN
  5. ORENITRAM [Concomitant]
     Active Substance: TREPROSTINIL
     Indication: Pulmonary arterial hypertension
     Dosage: 0.5 MG, TID
     Route: 048
     Dates: start: 20220719, end: 20220721
  6. ORENITRAM [Concomitant]
     Active Substance: TREPROSTINIL
     Indication: Pulmonary arterial hypertension
     Dosage: UNK
  7. ORENITRAM [Concomitant]
     Active Substance: TREPROSTINIL
     Indication: Pulmonary arterial hypertension
     Dosage: UNK
  8. AMBRISENTAN [Concomitant]
     Active Substance: AMBRISENTAN
  9. REMODULIN [Concomitant]
     Active Substance: TREPROSTINIL
     Indication: Pulmonary arterial hypertension
     Dosage: 1 MG/ML
     Dates: start: 20220630, end: 2022
  10. REMODULIN [Concomitant]
     Active Substance: TREPROSTINIL
     Indication: Pulmonary arterial hypertension
     Dosage: 0.006 ?G/KG
     Route: 058
     Dates: start: 2022, end: 2022
  11. REMODULIN [Concomitant]
     Active Substance: TREPROSTINIL
     Indication: Pulmonary arterial hypertension
     Dosage: 0.003 ?G/KG
     Route: 058
     Dates: start: 20220721, end: 2022
  12. REMODULIN [Concomitant]
     Active Substance: TREPROSTINIL
     Indication: Pulmonary arterial hypertension
     Dosage: 0.004 ?G/KG,
     Route: 058
     Dates: start: 20220719, end: 20220721

REACTIONS (1)
  - General physical health deterioration [Fatal]
